FAERS Safety Report 7396476-0 (Version None)
Quarter: 2011Q2

REPORT INFORMATION
  Report Type: 
  Country: None (occurrence: None)
  Receive Date: 20110406
  Receipt Date: 20101018
  Transmission Date: 20111010
  Serious: Yes (Hospitalization)
  Sender: FDA-Public Use
  Company Number: US-BAYER-200944111NA

PATIENT
  Sex: Female
  Weight: 60 kg

DRUGS (1)
  1. YAZ [Suspect]
     Indication: CONTRACEPTION
     Dosage: PHARMACY RECORDS: YAZ 84 DAY SUPPLY REFILLED ON 16AUG2006
     Route: 048
     Dates: start: 20060801, end: 20061001

REACTIONS (1)
  - PULMONARY EMBOLISM [None]
